FAERS Safety Report 15375194 (Version 1)
Quarter: 2018Q3

REPORT INFORMATION
  Report Type: Spontaneous
  Country: AU (occurrence: AU)
  Receive Date: 20180912
  Receipt Date: 20180912
  Transmission Date: 20181010
  Serious: Yes (Other)
  Sender: FDA-Public Use
  Company Number: AU-GLAXOSMITHKLINE-AU2018GSK162106

PATIENT
  Sex: Male

DRUGS (1)
  1. TAFENOQUINE [Suspect]
     Active Substance: TAFENOQUINE
     Indication: PRODUCT USED FOR UNKNOWN INDICATION
     Dosage: UNK

REACTIONS (14)
  - Depression [Unknown]
  - Balance disorder [Unknown]
  - Auditory disorder [Unknown]
  - Cognitive disorder [Unknown]
  - Plasmodium vivax infection [Unknown]
  - Suicide attempt [Unknown]
  - Malaise [Not Recovered/Not Resolved]
  - Dizziness [Unknown]
  - Toxicity to various agents [Unknown]
  - Encephalopathy [Unknown]
  - Anxiety [Unknown]
  - Neuropsychiatric symptoms [Unknown]
  - Drug ineffective [Unknown]
  - Brain injury [Unknown]
